FAERS Safety Report 5322297-6 (Version None)
Quarter: 2007Q2

REPORT INFORMATION
  Report Type: 
  Country: None (occurrence: None)
  Receive Date: 20070511
  Receipt Date: 20070503
  Transmission Date: 20071010
  Serious: Yes (Death, Life-Threatening, Hospitalization)
  Sender: FDA-Public Use
  Company Number: B0469311A

PATIENT
  Age: 72 Year
  Sex: Male
  Weight: 60 kg

DRUGS (5)
  1. COMBIVIR [Suspect]
     Indication: HIV INFECTION
     Route: 048
     Dates: start: 19961101, end: 20070125
  2. RETROVIR [Concomitant]
     Indication: HIV INFECTION
     Dosage: 300MG PER DAY
     Route: 048
     Dates: start: 20060904, end: 20070125
  3. TARKA [Concomitant]
     Route: 065
  4. INDAPAMIDE [Concomitant]
     Route: 065
  5. ASPEGIC 1000 [Concomitant]
     Dosage: 100MG PER DAY
     Route: 065

REACTIONS (9)
  - ASTHENIA [None]
  - CHROMATURIA [None]
  - CONDITION AGGRAVATED [None]
  - FAECES DISCOLOURED [None]
  - GENERAL PHYSICAL HEALTH DETERIORATION [None]
  - HEPATITIS [None]
  - JAUNDICE [None]
  - OEDEMA PERIPHERAL [None]
  - SOMNOLENCE [None]
